FAERS Safety Report 16166665 (Version 1)
Quarter: 2019Q2

REPORT INFORMATION
  Report Type: Spontaneous
  Country: CN (occurrence: CN)
  Receive Date: 20190407
  Receipt Date: 20190407
  Transmission Date: 20190711
  Serious: Yes (Other)
  Sender: FDA-Public Use
  Company Number: CN-ROCHE-2290677

PATIENT
  Age: 63 Year
  Sex: Male

DRUGS (22)
  1. FLUOROURACIL. [Concomitant]
     Active Substance: FLUOROURACIL
     Indication: METASTASES TO LIVER
     Route: 065
     Dates: start: 20150730
  2. FLUOROURACIL. [Concomitant]
     Active Substance: FLUOROURACIL
     Route: 065
     Dates: start: 20160819
  3. XELODA [Suspect]
     Active Substance: CAPECITABINE
     Indication: METASTASES TO LIVER
     Route: 065
     Dates: start: 20160222
  4. OXALIPLATIN. [Concomitant]
     Active Substance: OXALIPLATIN
     Indication: ADENOCARCINOMA OF COLON
     Route: 065
     Dates: start: 20150528
  5. FLUOROURACIL. [Concomitant]
     Active Substance: FLUOROURACIL
     Dosage: 3 TIMES
     Route: 065
     Dates: start: 20151025
  6. IRINOTECAN [Concomitant]
     Active Substance: IRINOTECAN
     Indication: METASTASES TO LIVER
  7. RALTITREXED [Concomitant]
     Active Substance: RALTITREXED
     Indication: METASTASES TO LUNG
  8. CALCIUM FOLINATE [Concomitant]
     Active Substance: LEUCOVORIN CALCIUM
     Indication: METASTASES TO LIVER
     Route: 065
     Dates: start: 20150730
  9. CALCIUM FOLINATE [Concomitant]
     Active Substance: LEUCOVORIN CALCIUM
     Route: 065
     Dates: start: 20160819
  10. I-125 FIBRINOGEN [Concomitant]
     Indication: METASTASES TO LIVER
     Route: 065
     Dates: start: 20160407
  11. IRINOTECAN [Concomitant]
     Active Substance: IRINOTECAN
     Indication: ADENOCARCINOMA OF COLON
     Route: 065
     Dates: start: 20160819
  12. AVASTIN [Suspect]
     Active Substance: BEVACIZUMAB
     Route: 065
     Dates: start: 20161001
  13. CALCIUM FOLINATE [Concomitant]
     Active Substance: LEUCOVORIN CALCIUM
     Indication: ADENOCARCINOMA OF COLON
     Route: 065
     Dates: start: 20150528
  14. I-125 FIBRINOGEN [Concomitant]
     Route: 065
     Dates: start: 20160606
  15. OXALIPLATIN. [Concomitant]
     Active Substance: OXALIPLATIN
     Indication: METASTASES TO LIVER
     Route: 065
     Dates: start: 20150730
  16. OXALIPLATIN. [Concomitant]
     Active Substance: OXALIPLATIN
     Dosage: 3 TIMES
     Route: 065
     Dates: start: 20151025
  17. FLUOROURACIL. [Concomitant]
     Active Substance: FLUOROURACIL
     Indication: ADENOCARCINOMA OF COLON
     Route: 065
     Dates: start: 20150528
  18. IRINOTECAN [Concomitant]
     Active Substance: IRINOTECAN
     Indication: METASTASES TO LUNG
  19. AVASTIN [Suspect]
     Active Substance: BEVACIZUMAB
     Indication: ADENOCARCINOMA OF COLON
     Route: 065
     Dates: start: 20150528
  20. AVASTIN [Suspect]
     Active Substance: BEVACIZUMAB
     Indication: METASTASES TO LIVER
     Route: 065
     Dates: start: 20160819
  21. CALCIUM FOLINATE [Concomitant]
     Active Substance: LEUCOVORIN CALCIUM
     Dosage: 3 TIMES
     Route: 065
     Dates: start: 20151025
  22. I-125 FIBRINOGEN [Concomitant]
     Indication: ADENOCARCINOMA OF COLON
     Route: 065
     Dates: start: 20160218

REACTIONS (6)
  - Haemorrhagic diathesis [Unknown]
  - Liver disorder [Unknown]
  - Granulocytopenia [Unknown]
  - Metastases to liver [Unknown]
  - Platelet count decreased [Unknown]
  - Diarrhoea [Unknown]

NARRATIVE: CASE EVENT DATE: 20160913
